FAERS Safety Report 6298210-4 (Version None)
Quarter: 2009Q3

REPORT INFORMATION
  Report Type: 
  Country: None (occurrence: None)
  Receive Date: 20090805
  Receipt Date: 20090728
  Transmission Date: 20100115
  Serious: Yes (Death, Hospitalization, Other)
  Sender: FDA-Public Use
  Company Number: US-AVENTIS-200916634US

PATIENT
  Sex: Female

DRUGS (9)
  1. LANTUS [Suspect]
     Dosage: DOSE: SLIDING SCALE
  2. LANTUS [Suspect]
     Route: 058
     Dates: end: 20090501
  3. LANTUS [Suspect]
     Route: 058
     Dates: start: 20090501, end: 20090531
  4. RYTHMOL                            /00546302/ [Concomitant]
  5. BUMEX [Concomitant]
     Dosage: DOSE: UNK
  6. KLOR-CON [Concomitant]
     Dosage: DOSE: UNK
  7. ZINC [Concomitant]
  8. NEPHRO-VITE                        /01719801/ [Concomitant]
     Dosage: DOSE: UNK
  9. HUMALOG [Concomitant]
     Dosage: DOSE: UNK

REACTIONS (24)
  - ASTHENIA [None]
  - ATRIAL FIBRILLATION [None]
  - BLOOD CREATININE ABNORMAL [None]
  - BLOOD CREATININE INCREASED [None]
  - BLOOD GLUCOSE FLUCTUATION [None]
  - BLOOD UREA ABNORMAL [None]
  - BLOOD UREA INCREASED [None]
  - BRUXISM [None]
  - CARDIAC FAILURE CONGESTIVE [None]
  - CHOKING [None]
  - COLD SWEAT [None]
  - CONVULSION [None]
  - DECREASED APPETITE [None]
  - DYSPHAGIA [None]
  - HYPERHIDROSIS [None]
  - HYPOGLYCAEMIA [None]
  - HYPOGLYCAEMIC SEIZURE [None]
  - MOANING [None]
  - MUSCULOSKELETAL STIFFNESS [None]
  - PALLOR [None]
  - RENAL FAILURE [None]
  - RENAL IMPAIRMENT [None]
  - THIRST [None]
  - TREMOR [None]
